FAERS Safety Report 12920451 (Version 6)
Quarter: 2021Q4

REPORT INFORMATION
  Report Type: Report from Study
  Country: CA (occurrence: CA)
  Receive Date: 20161108
  Receipt Date: 20211012
  Transmission Date: 20220303
  Serious: Yes (Hospitalization, Other)
  Sender: FDA-Public Use
  Company Number: PHHY2012CA041631

PATIENT
  Age: 85 Year
  Sex: Male

DRUGS (5)
  1. SANDOSTATIN LAR DEPOT [Suspect]
     Active Substance: OCTREOTIDE ACETATE
     Indication: Gastrinoma
     Dosage: 20 MG, QMO
     Route: 030
     Dates: start: 20120420, end: 20161031
  2. SANDOSTATIN LAR DEPOT [Suspect]
     Active Substance: OCTREOTIDE ACETATE
     Dosage: 30 MG, QMO
     Route: 030
     Dates: start: 20120420
  3. SANDOSTATIN LAR DEPOT [Suspect]
     Active Substance: OCTREOTIDE ACETATE
  4. SANDOSTATIN [Suspect]
     Active Substance: OCTREOTIDE ACETATE
     Indication: Gastrinoma
     Dosage: UNK
     Route: 058
     Dates: start: 20120208
  5. DIOVAN [Suspect]
     Active Substance: VALSARTAN
     Indication: Product used for unknown indication
     Dosage: UNK
     Route: 065

REACTIONS (10)
  - Urinary tract infection [Unknown]
  - Confusional state [Unknown]
  - Rib fracture [Unknown]
  - Head injury [Unknown]
  - Fall [Unknown]
  - Pain [Recovering/Resolving]
  - Diarrhoea [Unknown]
  - Blood pressure systolic increased [Unknown]
  - Sciatica [Unknown]
  - Constipation [Unknown]

NARRATIVE: CASE EVENT DATE: 20210930
